FAERS Safety Report 10045863 (Version 2)
Quarter: 2014Q1

REPORT INFORMATION
  Report Type: Spontaneous
  Country: US (occurrence: US)
  Receive Date: 20140329
  Receipt Date: 20140329
  Transmission Date: 20141002
  Serious: Yes (Other)
  Sender: FDA-Public Use
  Company Number: US-GE HEALTHCARE MEDICAL DIAGNOSTICS-OSCN-PR-1007S-0196

PATIENT
  Sex: Male

DRUGS (3)
  1. GADOLINIUM (UNSPECIFIED) [Suspect]
     Indication: SEPSIS
     Route: 042
     Dates: start: 20030917, end: 20030917
  2. PROHANCE [Suspect]
     Indication: PERIPHERAL VASCULAR DISORDER
     Route: 042
     Dates: start: 20030527, end: 20030527
  3. OPTIMARK [Suspect]
     Dates: start: 20030917, end: 20030917

REACTIONS (1)
  - Nephrogenic systemic fibrosis [Not Recovered/Not Resolved]
